FAERS Safety Report 22232131 (Version 1)
Quarter: 2023Q2

REPORT INFORMATION
  Report Type: Spontaneous
  Country: US (occurrence: US)
  Receive Date: 20230420
  Receipt Date: 20230420
  Transmission Date: 20230722
  Serious: No
  Sender: FDA-Public Use
  Company Number: US-JNJFOC-20230443750

PATIENT
  Age: 40 Year
  Sex: Female

DRUGS (3)
  1. MOTRIN [Suspect]
     Active Substance: IBUPROFEN
     Indication: Thermal burn
     Route: 065
     Dates: start: 20230406
  2. TYLENOL [Suspect]
     Active Substance: ACETAMINOPHEN
     Indication: Thermal burn
     Route: 065
     Dates: start: 20230406
  3. NEUTROGENA HEALTHY DEFENSE DAILY MOISTURIZER WITH SUNSCREEN HELIOPLEX [Concomitant]
     Indication: Prophylaxis against solar radiation
     Dosage: MEDIUM SIZE AMOUNT EVERY 3 HOURS
     Route: 065
     Dates: start: 20230406

REACTIONS (1)
  - Product use in unapproved indication [Unknown]

NARRATIVE: CASE EVENT DATE: 20230406
